FAERS Safety Report 13988501 (Version 1)
Quarter: 2017Q3

REPORT INFORMATION
  Report Type: Spontaneous
  Country: US (occurrence: US)
  Receive Date: 20170919
  Receipt Date: 20170919
  Transmission Date: 20171128
  Serious: Yes (Death, Other)
  Sender: FDA-Public Use
  Company Number: US-SAOL THERAPEUTICS-2017SAO01472

PATIENT
  Age: 53 Year
  Sex: Male

DRUGS (4)
  1. BACLOFEN. [Suspect]
     Active Substance: BACLOFEN
     Dosage: ^200 TIMES THE DOSE^
  2. BACLOFEN. [Suspect]
     Active Substance: BACLOFEN
     Dosage: UNKNOWN
     Route: 037
  3. DILAUDID [Concomitant]
     Active Substance: HYDROMORPHONE HYDROCHLORIDE
     Route: 037
  4. BUPIVOCAINE [Concomitant]
     Route: 037

REACTIONS (3)
  - Device malfunction [Not Recovered/Not Resolved]
  - Cardiac arrest [Fatal]
  - Drug withdrawal syndrome [Fatal]
